FAERS Safety Report 4557509-X (Version None)
Quarter: 2005Q1

REPORT INFORMATION
  Report Type: 
  Country: None (occurrence: None)
  Receive Date: 20050120
  Receipt Date: 20050118
  Transmission Date: 20050727
  Serious: Yes (Death)
  Sender: FDA-Public Use
  Company Number: PHBS2005TW00982

PATIENT
  Age: 10 Year
  Sex: Male
  Weight: 25 kg

DRUGS (2)
  1. CATAFLAM [Suspect]
     Indication: ARTHRALGIA
     Dosage: 37.5 MG/DAY
     Route: 048
     Dates: start: 20050105, end: 20050116
  2. LEDERSCON [Concomitant]
     Dates: start: 20050105, end: 20050116

REACTIONS (1)
  - HEPATIC FAILURE [None]
